FAERS Safety Report 10364455 (Version 1)
Quarter: 2014Q3

REPORT INFORMATION
  Report Type: Spontaneous
  Country: US (occurrence: None)
  Receive Date: 20140805
  Receipt Date: 20140805
  Transmission Date: 20150326
  Serious: No
  Sender: FDA-Public Use
  Company Number: None

PATIENT
  Age: 94 Year
  Sex: Female
  Weight: 64.4 kg

DRUGS (1)
  1. NOLVADEX [Suspect]
     Active Substance: TAMOXIFEN CITRATE

REACTIONS (3)
  - Dyspnoea [None]
  - General physical health deterioration [None]
  - Breast cancer metastatic [None]

NARRATIVE: CASE EVENT DATE: 20130212
